FAERS Safety Report 5284811-9 (Version None)
Quarter: 2007Q2

REPORT INFORMATION
  Report Type: 
  Country: None (occurrence: None)
  Receive Date: 20070403
  Receipt Date: 20070330
  Transmission Date: 20071010
  Serious: Yes (Hospitalization)
  Sender: FDA-Public Use
  Company Number: FR-BRISTOL-MYERS SQUIBB COMPANY-13734645

PATIENT
  Sex: Female

DRUGS (1)
  1. COAPROVEL TABS [Suspect]
     Route: 048

REACTIONS (1)
  - BONE MARROW FAILURE [None]
